FAERS Safety Report 6510175-6 (Version None)
Quarter: 2009Q4

REPORT INFORMATION
  Report Type: 
  Country: None (occurrence: None)
  Receive Date: 20091222
  Receipt Date: 20091216
  Transmission Date: 20100525
  Serious: Yes (Hospitalization)
  Sender: FDA-Public Use
  Company Number: DE-ABBOTT-09P-062-0605270-00

PATIENT
  Sex: Male
  Weight: 113 kg

DRUGS (7)
  1. HUMIRA [Suspect]
     Indication: CROHN'S DISEASE
     Dosage: ONCE PER WEEK ON FRIDAYS
     Route: 058
     Dates: start: 20090310
  2. METHOTREXATE [Concomitant]
     Indication: CROHN'S DISEASE
     Dosage: 22 MG ONCE PER WEEK
     Dates: start: 20080801
  3. ASPIRIN [Concomitant]
     Indication: DRUG USE FOR UNKNOWN INDICATION
     Dosage: OPD
  4. PANTOPRAZOLE [Concomitant]
     Indication: DRUG USE FOR UNKNOWN INDICATION
     Dosage: OPD
  5. FOLSAN 5MG [Concomitant]
     Indication: DRUG USE FOR UNKNOWN INDICATION
     Dosage: TWICE PER WEEK
  6. TRIMINEURIN [Concomitant]
     Indication: DRUG USE FOR UNKNOWN INDICATION
     Dosage: 50 MG DAILY
  7. QUANTALAN SUGARLESS [Concomitant]
     Indication: DRUG USE FOR UNKNOWN INDICATION
     Dosage: IF REQUIRED TID/ OPD

REACTIONS (2)
  - HEMIPARESIS [None]
  - REVERSIBLE ISCHAEMIC NEUROLOGICAL DEFICIT [None]
